FAERS Safety Report 10745503 (Version 1)
Quarter: 2015Q1

REPORT INFORMATION
  Report Type: Report from Study
  Country: CA (occurrence: CA)
  Receive Date: 20150128
  Receipt Date: 20150128
  Transmission Date: 20150721
  Serious: Yes (Other)
  Sender: FDA-Public Use
  Company Number: CA-JNJFOC-20150114906

PATIENT
  Age: 54 Year
  Sex: Female
  Weight: 108 kg

DRUGS (10)
  1. DIABETA [Concomitant]
     Active Substance: GLYBURIDE
     Dosage: 10 (UNITS UNSPECIFIED)
     Route: 065
  2. REMICADE [Suspect]
     Active Substance: INFLIXIMAB
     Indication: RHEUMATOID ARTHRITIS
     Route: 042
     Dates: start: 200812
  3. METHOTREXATE [Concomitant]
     Active Substance: METHOTREXATE
     Dosage: 2.5 X 8 (UNITS UNSPECIFIED)
     Route: 065
  4. OXYNEO [Concomitant]
     Active Substance: OXYCODONE
     Dosage: 10 (UNITS UNSPECIFIED)
     Route: 065
  5. FOLIC ACID. [Concomitant]
     Active Substance: FOLIC ACID
     Dosage: 5 (UNITS UNSPECIFIED)
     Route: 065
  6. ASA [Concomitant]
     Active Substance: ASPIRIN
     Dosage: 80
     Route: 065
  7. CILAZAPRIL [Concomitant]
     Active Substance: CILAZAPRIL ANHYDROUS
     Dosage: 25 (UNITS UNSPECIFIED)
     Route: 065
  8. LIPITOR [Concomitant]
     Active Substance: ATORVASTATIN CALCIUM
     Dosage: 40 (UNITS UNSPECIFIED)
     Route: 065
  9. NPH INSULIN [Concomitant]
     Active Substance: INSULIN BEEF
     Dosage: 28 AM/12 HS
     Route: 065
  10. CELEBREX [Concomitant]
     Active Substance: CELECOXIB
     Dosage: 200 (UNITS UNSPECIFIED)
     Route: 065

REACTIONS (2)
  - Influenza [Recovered/Resolved]
  - Wrist fracture [Unknown]

NARRATIVE: CASE EVENT DATE: 201301
